FAERS Safety Report 17225079 (Version 18)
Quarter: 2020Q4

REPORT INFORMATION
  Report Type: Report from Study
  Country: FR (occurrence: FR)
  Receive Date: 20200102
  Receipt Date: 20201218
  Transmission Date: 20210113
  Serious: Yes (Congenital Anomaly, Other)
  Sender: FDA-Public Use
  Company Number: FR-MYLANLABS-2019M1131600

PATIENT
  Sex: Male
  Weight: 3.23 kg

DRUGS (39)
  1. EFAVIRENZ. [Suspect]
     Active Substance: EFAVIRENZ
     Indication: HIV INFECTION
     Dosage: COURSE NUMBER 2
     Route: 064
  2. EFAVIRENZ. [Suspect]
     Active Substance: EFAVIRENZ
     Dosage: UNK, COURSE NUMBER 2
     Route: 064
  3. RETROVIR [Suspect]
     Active Substance: ZIDOVUDINE
     Dosage: UNK
     Route: 064
  4. STOCRIN [Suspect]
     Active Substance: EFAVIRENZ
     Dosage: UNK
     Route: 064
  5. ZIDOVUDINE. [Suspect]
     Active Substance: ZIDOVUDINE
     Dosage: UNK
     Route: 064
  6. NELFINAVIR MESILATE [Suspect]
     Active Substance: NELFINAVIR MESYLATE
     Indication: HIV INFECTION
     Dosage: 250 DOSAGE FORM
     Route: 064
  7. STOCRIN [Suspect]
     Active Substance: EFAVIRENZ
     Indication: HIV INFECTION
     Dosage: COURSE NUMBER 1
     Route: 064
     Dates: start: 20070403, end: 20070510
  8. ZIDOVUDINE. [Suspect]
     Active Substance: ZIDOVUDINE
     Indication: HIV INFECTION
     Dosage: UNK, COURSE NUMBER 1
     Route: 064
     Dates: start: 20070521
  9. LAMIVUDINE. [Suspect]
     Active Substance: LAMIVUDINE
     Dosage: COURSE NUMBER 2
     Route: 064
  10. RETROVIR [Suspect]
     Active Substance: ZIDOVUDINE
     Dosage: UNK, COURSE 1
     Route: 064
     Dates: start: 20070521
  11. EPIVIR [Suspect]
     Active Substance: LAMIVUDINE
     Indication: HIV INFECTION
     Dosage: COURSE 1
     Route: 064
     Dates: start: 20070512
  12. ZEFFIX [Suspect]
     Active Substance: LAMIVUDINE
     Indication: HIV INFECTION
     Dosage: COURSE NUMBER 1
     Route: 064
     Dates: start: 20070512
  13. KALETRA [Suspect]
     Active Substance: LOPINAVIR\RITONAVIR
     Indication: HIV INFECTION
     Dosage: COURSE NUMBER 1
     Route: 064
     Dates: start: 20070510
  14. KALETRA [Suspect]
     Active Substance: LOPINAVIR\RITONAVIR
     Dosage: UNK
     Route: 064
     Dates: start: 20200510
  15. VIREAD [Suspect]
     Active Substance: TENOFOVIR DISOPROXIL FUMARATE
     Indication: HIV INFECTION
     Dosage: UNK, COURSE 1
     Route: 064
     Dates: start: 20070403, end: 20070521
  16. VIREAD [Suspect]
     Active Substance: TENOFOVIR DISOPROXIL FUMARATE
     Dosage: UNK
     Route: 064
  17. SUSTIVA [Suspect]
     Active Substance: EFAVIRENZ
     Indication: HIV INFECTION
     Dosage: UNK
     Route: 064
     Dates: start: 20070403, end: 20070510
  18. NELFINAVIR MESILATE [Suspect]
     Active Substance: NELFINAVIR MESYLATE
     Dosage: 250 MILLIGRAM, QD
     Route: 064
     Dates: start: 20070512, end: 20070612
  19. LAMIVUDINE. [Suspect]
     Active Substance: LAMIVUDINE
     Dosage: UNK
     Route: 064
  20. NORVIR [Suspect]
     Active Substance: RITONAVIR
     Indication: HIV INFECTION
     Dosage: UNK, COURSE 2
     Route: 064
     Dates: start: 20070510
  21. LOPINAVIR [Suspect]
     Active Substance: LOPINAVIR
     Dosage: UNK
     Route: 064
  22. EMTRIVA [Suspect]
     Active Substance: EMTRICITABINE
     Indication: HIV INFECTION
     Dosage: UNK, COURSE 1
     Route: 064
     Dates: start: 20070403, end: 20070521
  23. ALUVIA [Suspect]
     Active Substance: LOPINAVIR\RITONAVIR
     Indication: HIV INFECTION
     Dosage: COURSE NUMBER 1
     Route: 064
     Dates: start: 20070510
  24. TENOFOVIR DISOPROXIL [Suspect]
     Active Substance: TENOFOVIR DISOPROXIL
     Indication: HIV INFECTION
     Dosage: UNK (COURSE NUMBER 1)
     Route: 064
     Dates: start: 20070403, end: 20070521
  25. RITONAVIR. [Suspect]
     Active Substance: RITONAVIR
     Indication: HIV INFECTION
     Dosage: UNK
     Route: 064
     Dates: start: 20070510
  26. RETROVIR [Suspect]
     Active Substance: ZIDOVUDINE
     Indication: HIV INFECTION
     Dosage: COURSE NUMBER 1
     Route: 064
     Dates: start: 20070521
  27. LOPINAVIR [Suspect]
     Active Substance: LOPINAVIR
     Indication: HIV INFECTION
     Dosage: UNK
     Route: 064
     Dates: start: 20070510
  28. LAMIVUDINE. [Suspect]
     Active Substance: LAMIVUDINE
     Indication: HIV INFECTION
     Dosage: UNK, COURSE NUMBER 1
     Route: 064
     Dates: start: 20070512
  29. RITONAVIR. [Suspect]
     Active Substance: RITONAVIR
     Dosage: UNK
     Route: 064
     Dates: start: 20070512
  30. ZIDOVUDINE. [Suspect]
     Active Substance: ZIDOVUDINE
     Dosage: COURSE NUMBER 2
     Route: 064
  31. EMTRIVA [Suspect]
     Active Substance: EMTRICITABINE
     Indication: HIV INFECTION
     Dosage: COURSE NUMBER 1
     Route: 064
     Dates: start: 20070403, end: 20070521
  32. EMTRIVA [Suspect]
     Active Substance: EMTRICITABINE
     Dosage: DOSAGE UNIT: TAB/CAPS
     Route: 064
  33. RITONAVIR. [Suspect]
     Active Substance: RITONAVIR
     Dosage: COURSE NUMBER 1
     Route: 064
  34. EFAVIRENZ. [Suspect]
     Active Substance: EFAVIRENZ
     Dosage: UNK
     Route: 064
     Dates: start: 20070403, end: 20070521
  35. EFAVIRENZ. [Suspect]
     Active Substance: EFAVIRENZ
     Indication: HIV INFECTION
     Dosage: UNK
     Route: 064
     Dates: start: 20070403, end: 20070510
  36. TENOFOVIR DISOPROXIL [Suspect]
     Active Substance: TENOFOVIR DISOPROXIL
     Dosage: UNK
     Route: 064
  37. NORVIR [Suspect]
     Active Substance: RITONAVIR
     Dosage: UNK
     Route: 064
  38. VIRACEPT [Suspect]
     Active Substance: NELFINAVIR MESYLATE
     Indication: HIV INFECTION
     Dosage: 250 MG, QD, COURSE NUMBER 1
     Route: 064
     Dates: start: 20070512, end: 20070612
  39. VIRACEPT [Suspect]
     Active Substance: NELFINAVIR MESYLATE
     Dosage: UNK
     Route: 064

REACTIONS (2)
  - Foetal exposure during pregnancy [Recovered/Resolved]
  - Hydrocele [Unknown]

NARRATIVE: CASE EVENT DATE: 20070403
